FAERS Safety Report 4475394-1 (Version None)
Quarter: 2004Q4

REPORT INFORMATION
  Report Type: 
  Country: None (occurrence: None)
  Receive Date: 20041015
  Receipt Date: 20040728
  Transmission Date: 20050328
  Serious: Yes (Hospitalization, Other)
  Sender: FDA-Public Use
  Company Number: EC-ABBOTT-04P-047-0268736-00

PATIENT
  Sex: Male

DRUGS (6)
  1. KLARICID SUSPENSION [Suspect]
     Indication: INFLAMMATION
     Dosage: 250MG/5 ML; DAILY DOSE 15 MG/KG; UNIT DOSE 7.5 MG/KG
     Route: 048
     Dates: start: 20040724, end: 20040724
  2. KLARICID SUSPENSION [Suspect]
  3. KLARICID SUSPENSION [Suspect]
  4. KLARICID SUSPENSION [Suspect]
  5. DICLOFENAC SODIUM [Suspect]
     Indication: PYREXIA
     Route: 048
     Dates: start: 20040724, end: 20040724
  6. VOLTAREN [Suspect]
     Indication: PYREXIA
     Route: 054
     Dates: start: 20040725, end: 20040725

REACTIONS (4)
  - OEDEMA PERIPHERAL [None]
  - RASH [None]
  - RASH GENERALISED [None]
  - SWELLING FACE [None]
